FAERS Safety Report 24587410 (Version 2)
Quarter: 2024Q4

REPORT INFORMATION
  Report Type: Spontaneous
  Country: FR (occurrence: FR)
  Receive Date: 20241107
  Receipt Date: 20241121
  Transmission Date: 20250115
  Serious: Yes (Hospitalization, Other)
  Sender: BRISTOL-MYERS SQUIBB COMPANY
  Company Number: FR-ROCHE-10000117228

PATIENT
  Age: 53 Year
  Sex: Female
  Weight: 78 kg

DRUGS (13)
  1. PACLITAXEL [Suspect]
     Active Substance: PACLITAXEL
     Indication: Triple negative breast cancer
     Dosage: MOST RECENT DOSE PRIOR TO AE 190 MG ON 29/JUL/2024?CUMULATIVE DOSE 2280 MG
     Route: 042
     Dates: start: 20240423, end: 20240729
  2. TIRAGOLUMAB [Suspect]
     Active Substance: TIRAGOLUMAB
     Indication: Triple negative breast cancer
     Dosage: MOST RECENT DOSE PRIOR TO AE 840 MG ON 15/JUL/2024?CUMULATIVE DOSE 3360 MG
     Route: 042
     Dates: start: 20240423, end: 20240715
  3. TIRAGOLUMAB [Suspect]
     Active Substance: TIRAGOLUMAB
     Dosage: MOST RECENT DOSE PRIOR TO AE 840 MG ON 15/JUL/2024?CUMULATIVE DOSE 3360 MG
     Route: 042
     Dates: end: 20240715
  4. ATEZOLIZUMAB [Suspect]
     Active Substance: ATEZOLIZUMAB
     Indication: Triple negative breast cancer
     Dosage: MOST RECENT DOSE 1680 MG ON 15-JUL-2024?CUMULATIVE DOSE 6720 MG
     Route: 042
     Dates: start: 20240423, end: 20240715
  5. INDAPAMIDE [Concomitant]
     Active Substance: INDAPAMIDE
     Indication: Hypertension
     Route: 048
     Dates: start: 1991
  6. FYNADIN [Concomitant]
     Indication: Product used for unknown indication
     Route: 048
     Dates: start: 20240820
  7. SODIUM BICARBONATE [Concomitant]
     Active Substance: SODIUM BICARBONATE
     Indication: Product used for unknown indication
  8. POLYETHYLENE GLYCOLS [Concomitant]
     Active Substance: POLYETHYLENE GLYCOLS
     Indication: Product used for unknown indication
  9. MOVICOL [Concomitant]
     Active Substance: POLYETHYLENE GLYCOL 3350\POTASSIUM CHLORIDE\SODIUM BICARBONATE\SODIUM CHLORIDE
     Indication: Constipation
     Route: 048
     Dates: start: 202405
  10. ACETAMINOPHEN [Concomitant]
     Active Substance: ACETAMINOPHEN
     Indication: Product used for unknown indication
     Route: 048
  11. CHOLECALCIFEROL [Concomitant]
     Active Substance: CHOLECALCIFEROL
     Indication: Product used for unknown indication
  12. DAPTOMYCIN [Concomitant]
     Active Substance: DAPTOMYCIN
     Indication: Product used for unknown indication
  13. ENOXAPARIN SODIUM [Concomitant]
     Active Substance: ENOXAPARIN SODIUM
     Indication: Product used for unknown indication

REACTIONS (3)
  - Adrenal insufficiency [Recovered/Resolved]
  - Myocarditis [Recovered/Resolved]
  - Off label use [Unknown]

NARRATIVE: CASE EVENT DATE: 20240731
